FAERS Safety Report 7508966-8 (Version None)
Quarter: 2011Q2

REPORT INFORMATION
  Report Type: 
  Country: None (occurrence: None)
  Receive Date: 20110527
  Receipt Date: 20110524
  Transmission Date: 20111010
  Serious: Yes (Death)
  Sender: FDA-Public Use
  Company Number: GB-PFIZER INC-2011112416

PATIENT
  Age: 56 Year
  Sex: Male

DRUGS (4)
  1. GEMTUZUMAB OZOGAMICIN [Suspect]
     Dosage: UNK MG, UNK
     Dates: start: 20110511, end: 20110520
  2. ITRACONAZOLE [Concomitant]
     Dosage: 200 MG, 2X/DAY
     Dates: start: 20110501
  3. CYTARABINE [Suspect]
     Dosage: UNK
     Dates: start: 20110511, end: 20110520
  4. DAUNORUBICIN HCL [Suspect]
     Dosage: UNK
     Dates: start: 20110511, end: 20110520

REACTIONS (1)
  - COLITIS [None]
